FAERS Safety Report 7766769-3 (Version None)
Quarter: 2011Q3

REPORT INFORMATION
  Report Type: 
  Country: None (occurrence: None)
  Receive Date: 20110922
  Receipt Date: 20110718
  Transmission Date: 20111222
  Serious: No
  Sender: FDA-Public Use
  Company Number: US-ASTRAZENECA-2011SE04543

PATIENT
  Age: 46 Year
  Sex: Male

DRUGS (8)
  1. SEROQUEL XR [Suspect]
     Route: 048
  2. LYRICA [Concomitant]
     Indication: BURNING FEET SYNDROME
  3. SEROQUEL XR [Suspect]
     Indication: DEPRESSION
     Route: 048
     Dates: start: 20100101, end: 20110101
  4. LEXAPRO [Concomitant]
  5. SEROQUEL XR [Suspect]
     Indication: TACHYPHRENIA
     Route: 048
     Dates: start: 20100101, end: 20110101
  6. SEROQUEL XR [Suspect]
     Route: 048
  7. AMBIEN [Concomitant]
  8. LYRICA [Concomitant]
     Indication: PAIN

REACTIONS (14)
  - BURNING FEET SYNDROME [None]
  - BLOOD CHOLESTEROL INCREASED [None]
  - MEMORY IMPAIRMENT [None]
  - VISUAL ACUITY REDUCED [None]
  - PAIN IN EXTREMITY [None]
  - MALAISE [None]
  - HEADACHE [None]
  - IRRITABILITY [None]
  - NIGHT SWEATS [None]
  - VISION BLURRED [None]
  - OFF LABEL USE [None]
  - INSOMNIA [None]
  - ACTIVITIES OF DAILY LIVING IMPAIRED [None]
  - DRUG DOSE OMISSION [None]
